FAERS Safety Report 18978317 (Version 4)
Quarter: 2025Q3

REPORT INFORMATION
  Report Type: Spontaneous
  Country: US (occurrence: US)
  Receive Date: 20210307
  Receipt Date: 20250704
  Transmission Date: 20251020
  Serious: Yes (Other)
  Sender: GLENMARK
  Company Number: US-GLENMARK PHARMACEUTICALS-2021GMK052020

PATIENT

DRUGS (9)
  1. ESTRADIOL [Suspect]
     Active Substance: ESTRADIOL
     Indication: Urinary tract infection
     Route: 067
     Dates: start: 20210201
  2. ESTRADIOL [Suspect]
     Active Substance: ESTRADIOL
  3. DEMANNOSE [Concomitant]
     Active Substance: DEMANNOSE
     Indication: Supplementation therapy
     Route: 048
     Dates: start: 2019
  4. DEMANNOSE [Concomitant]
     Active Substance: DEMANNOSE
     Indication: Urinary tract infection
  5. METHENAMINE [Concomitant]
     Active Substance: METHENAMINE
     Indication: Urinary tract infection
     Route: 048
     Dates: start: 2019
  6. VITAMIN C [Concomitant]
     Active Substance: ASCORBIC ACID
     Indication: Urinary tract infection
     Route: 048
     Dates: start: 2020
  7. BIFIDOBACTERIUM ANIMALIS LACTIS [Concomitant]
     Active Substance: BIFIDOBACTERIUM ANIMALIS LACTIS
     Indication: Urinary tract infection
     Route: 048
     Dates: start: 2020
  8. ASCORBIC ACID\CRANBERRY [Concomitant]
     Active Substance: ASCORBIC ACID\CRANBERRY
     Indication: Urinary tract infection
     Route: 048
     Dates: start: 2020
  9. LEVOTHYROXINE [Concomitant]
     Active Substance: LEVOTHYROXINE
     Indication: Thyroid disorder
     Route: 048

REACTIONS (6)
  - Vulvovaginal injury [Unknown]
  - Injury associated with device [Unknown]
  - Wrong technique in device usage process [Unknown]
  - Product use in unapproved indication [Unknown]
  - Device physical property issue [Unknown]
  - Product substitution issue [Unknown]

NARRATIVE: CASE EVENT DATE: 20210201
